FAERS Safety Report 7802220-2 (Version None)
Quarter: 2011Q4

REPORT INFORMATION
  Report Type: 
  Country: None (occurrence: None)
  Receive Date: 20111007
  Receipt Date: 20110927
  Transmission Date: 20120403
  Serious: Yes (Other)
  Sender: FDA-Public Use
  Company Number: US-JNJFOC-20091203801

PATIENT
  Sex: Female
  Weight: 58.97 kg

DRUGS (8)
  1. LEVAQUIN [Suspect]
     Indication: CYSTITIS
     Route: 048
     Dates: start: 20090916, end: 20090901
  2. LEVAQUIN [Suspect]
     Route: 048
  3. TOPAMAX [Suspect]
     Dosage: SOMETIME AROUND OCT-2008 - NOV-2008
     Route: 048
     Dates: start: 20080101, end: 20090930
  4. LEVAQUIN [Suspect]
     Route: 048
     Dates: start: 20090904
  5. TOPAMAX [Suspect]
     Indication: CONVULSION
     Dosage: FOR ABOUT A MONTH
     Route: 048
     Dates: start: 20080901
  6. LEVAQUIN [Suspect]
     Route: 048
     Dates: start: 20100803
  7. LEVAQUIN [Suspect]
     Route: 048
     Dates: start: 20090930, end: 20091001
  8. LEVAQUIN [Suspect]
     Route: 048

REACTIONS (6)
  - ASTHENIA [None]
  - NAUSEA [None]
  - INCONTINENCE [None]
  - CYSTITIS [None]
  - BLOOD URINE PRESENT [None]
  - DEPRESSION [None]
